FAERS Safety Report 23673739 (Version 2)
Quarter: 2024Q3

REPORT INFORMATION
  Report Type: Spontaneous
  Country: JP (occurrence: JP)
  Receive Date: 20240326
  Receipt Date: 20240715
  Transmission Date: 20241017
  Serious: Yes (Other)
  Sender: ARGENX BVBA
  Company Number: JP-ARGENX-2023-ARGX-JP003635AA

PATIENT

DRUGS (2)
  1. EFGARTIGIMOD ALFA [Suspect]
     Active Substance: EFGARTIGIMOD ALFA
     Indication: Myasthenia gravis
     Dosage: UNK
     Route: 042
     Dates: start: 20230824
  2. EFGARTIGIMOD ALFA [Suspect]
     Active Substance: EFGARTIGIMOD ALFA
     Dosage: UNK
     Route: 042

REACTIONS (20)
  - Appendicitis [Unknown]
  - Malaise [Unknown]
  - Chills [Recovering/Resolving]
  - Hot flush [Unknown]
  - Hyperhidrosis [Unknown]
  - Decreased appetite [Unknown]
  - Pyrexia [Unknown]
  - Adverse reaction [Unknown]
  - Adverse reaction [Unknown]
  - Muscular weakness [Unknown]
  - Nausea [Unknown]
  - Fatigue [Unknown]
  - Fatigue [Unknown]
  - Fatigue [Unknown]
  - Dizziness [Unknown]
  - Dizziness [Unknown]
  - Asthenia [Unknown]
  - Headache [Unknown]
  - Headache [Recovering/Resolving]
  - Intentional underdose [Unknown]

NARRATIVE: CASE EVENT DATE: 20230824
